FAERS Safety Report 11228064 (Version 1)
Quarter: 2015Q2

REPORT INFORMATION
  Report Type: Spontaneous
  Country: NZ (occurrence: GB)
  Receive Date: 20150630
  Receipt Date: 20150630
  Transmission Date: 20150821
  Serious: Yes (Other)
  Sender: FDA-Public Use
  Company Number: NZ-APOTEX-2015AP010332

PATIENT
  Sex: Female

DRUGS (2)
  1. PAROXETINE [Interacting]
     Active Substance: PAROXETINE\PAROXETINE HYDROCHLORIDE
     Indication: AFFECTIVE DISORDER
  2. PAROXETINE [Suspect]
     Active Substance: PAROXETINE\PAROXETINE HYDROCHLORIDE
     Indication: BULIMIA NERVOSA
     Dosage: INITIAL DOSE NOT STATED DOSE INCREASED TO 20 MG/DAY
     Route: 065

REACTIONS (6)
  - Alcoholism [Unknown]
  - Alcohol intolerance [Unknown]
  - Alcohol poisoning [Unknown]
  - Loss of consciousness [Unknown]
  - Alcohol interaction [Unknown]
  - Abnormal behaviour [Unknown]
